FAERS Safety Report 10109228 (Version 2)
Quarter: 2014Q3

REPORT INFORMATION
  Report Type: Spontaneous
  Country: US (occurrence: None)
  Receive Date: 20140421
  Receipt Date: 20140722
  Transmission Date: 20150326
  Serious: Yes (Other)
  Sender: FDA-Public Use
  Company Number: AEGR000303

PATIENT
  Age: 58 Year
  Sex: Female
  Weight: 96.6 kg

DRUGS (13)
  1. EFFEXOR(VENLAFAXINE HYDROCHLORIDE) [Concomitant]
  2. VITAMIN B12(CYANOCOBALMIN) [Concomitant]
  3. JUXTAPID [Suspect]
     Active Substance: LOMITAPIDE MESYLATE
     Indication: TYPE IIA HYPERLIPIDAEMIA
     Route: 048
     Dates: start: 201312, end: 20140126
  4. RANEXA(RANOLAZINE) [Concomitant]
  5. LORAZEPAM(LORAZEPAM) [Concomitant]
     Active Substance: LORAZEPAM
  6. NITROGLYCERIN(GLYCERYL TRINITRATE) [Concomitant]
  7. RISPERIDONE(RISPERIDONE) [Concomitant]
  8. CALCIUM WITH VITAMIN D (CALCIUM CARBONATE CHOLECALCIFEROL) [Concomitant]
  9. BENADRYL(DIPHENHYDRAMINE HYDROCHLORIDE) [Concomitant]
  10. VITAMIN E (TOCOPHERLY ACID SUCCINATE) [Concomitant]
  11. OMEGA 3 6 9 (OMEGA 9 FATTY ACIDS, OMEGA-3 FATTY ACIDS, OMEGA-6 FATTY ACIDS) [Concomitant]
  12. ASA(ACETYLSALICYLIC ACID) [Concomitant]
  13. OMEPRAZOLE(OMEPRAZOLE) [Concomitant]
     Active Substance: OMEPRAZOLE

REACTIONS (7)
  - Muscle spasms [None]
  - Nausea [None]
  - Hepatic enzyme increased [None]
  - Decreased appetite [None]
  - Eructation [None]
  - Weight decreased [None]
  - Abdominal pain upper [None]

NARRATIVE: CASE EVENT DATE: 201312
